FAERS Safety Report 5153824-X (Version None)
Quarter: 2006Q4

REPORT INFORMATION
  Report Type: 
  Country: None (occurrence: None)
  Receive Date: 20061120
  Receipt Date: 20061113
  Transmission Date: 20070319
  Serious: Yes (Death)
  Sender: FDA-Public Use
  Company Number: 2006AC02133

PATIENT
  Age: 75 Year
  Sex: Female

DRUGS (1)
  1. QUETIAPINE FUMARATE [Suspect]
     Route: 048

REACTIONS (3)
  - COMA [None]
  - HYPOXIA [None]
  - NEUROLEPTIC MALIGNANT SYNDROME [None]
